FAERS Safety Report 19844986 (Version 1)
Quarter: 2021Q3

REPORT INFORMATION
  Report Type: Spontaneous
  Country: US (occurrence: US)
  Receive Date: 20210917
  Receipt Date: 20210917
  Transmission Date: 20211014
  Serious: Yes (Other)
  Sender: FDA-Public Use
  Company Number: US-JNJFOC-20210916070

PATIENT
  Sex: Male

DRUGS (2)
  1. NEUTROGENA SUNSCREEN NOS [Suspect]
     Active Substance: AVOBENZONE\HOMOSALATE\OCTISALATE\OCTOCRYLENE OR AVOBENZONE\HOMOSALATE\OCTISALATE\OCTOCRYLENE\OXYBENZONE
     Indication: SKIN DISORDER PROPHYLAXIS
     Route: 061
  2. NEUTROGENA SUNSCREEN NOS [Suspect]
     Active Substance: AVOBENZONE\HOMOSALATE\OCTISALATE\OCTOCRYLENE OR AVOBENZONE\HOMOSALATE\OCTISALATE\OCTOCRYLENE\OXYBENZONE
     Indication: SKIN DISORDER PROPHYLAXIS
     Route: 061

REACTIONS (2)
  - Malignant melanoma [Unknown]
  - Skin cancer [Unknown]
